FAERS Safety Report 7911549-9 (Version None)
Quarter: 2011Q4

REPORT INFORMATION
  Report Type: 
  Country: None (occurrence: None)
  Receive Date: 20111114
  Receipt Date: 20111105
  Transmission Date: 20120403
  Serious: Yes (Hospitalization)
  Sender: FDA-Public Use
  Company Number: CA-SANOFI-AVENTIS-2011SA072948

PATIENT
  Age: 46 Year
  Sex: Female
  Weight: 72 kg

DRUGS (8)
  1. SOLOSTAR [Suspect]
     Indication: TYPE 2 DIABETES MELLITUS
  2. CRESTOR [Concomitant]
     Dates: start: 20100301
  3. LANTUS [Suspect]
     Indication: TYPE 2 DIABETES MELLITUS
     Dates: start: 20110220
  4. METFORMIN [Concomitant]
     Indication: TYPE 2 DIABETES MELLITUS
  5. ADALAT [Concomitant]
     Indication: HYPERTENSION
     Dates: start: 20100901
  6. GLYBURIDE [Concomitant]
     Indication: TYPE 2 DIABETES MELLITUS
     Dates: start: 20050101, end: 20110220
  7. HYDROCHLOROTHIAZIDE [Concomitant]
     Indication: HYPERTENSION
     Dates: start: 20010101
  8. DIOVAN [Concomitant]
     Indication: HYPERTENSION
     Dates: start: 20010101

REACTIONS (1)
  - HOSPITALISATION [None]
